FAERS Safety Report 7408376-8 (Version None)
Quarter: 2011Q2

REPORT INFORMATION
  Report Type: 
  Country: None (occurrence: None)
  Receive Date: 20110401
  Receipt Date: 20110323
  Transmission Date: 20111010
  Serious: Yes (Hospitalization)
  Sender: FDA-Public Use
  Company Number: 1000019456

PATIENT
  Age: 62 Year
  Sex: Female
  Weight: 99.79 kg

DRUGS (5)
  1. LEXAPRO [Suspect]
  2. DIAZEPAM [Suspect]
  3. ATENOLOL [Suspect]
  4. CINRYZE [Suspect]
     Indication: PROPHYLAXIS
     Dosage: 500 UNIT (500 UNITS, 1 IN 1 WK)
     Dates: start: 20091101
  5. CINRYZE [Suspect]
     Indication: HEREDITARY ANGIOEDEMA
     Dosage: 500 UNIT (500 UNITS, 1 IN 1 WK)
     Dates: start: 20091101

REACTIONS (3)
  - LIP SWELLING [None]
  - RASH [None]
  - INFUSION RELATED REACTION [None]
